FAERS Safety Report 9469983 (Version 1)
Quarter: 2013Q3

REPORT INFORMATION
  Report Type: Spontaneous
  Country: US (occurrence: None)
  Receive Date: 20130820
  Receipt Date: 20130820
  Transmission Date: 20140515
  Serious: Yes (Hospitalization)
  Sender: FDA-Public Use
  Company Number: None

PATIENT
  Age: 27 Year
  Sex: Female

DRUGS (7)
  1. TECFIDERA [Suspect]
     Indication: MULTIPLE SCLEROSIS
     Dosage: 120 MG X 7 DAYS, THEN 240 MG
     Route: 048
  2. VANCOMYCIN [Concomitant]
  3. AMBIEN [Concomitant]
  4. ATIVAN [Concomitant]
  5. KLONOPIN [Concomitant]
  6. OXYCODONE [Concomitant]
  7. BENTYL [Concomitant]

REACTIONS (1)
  - Impaired gastric emptying [None]
